FAERS Safety Report 6326826-5 (Version None)
Quarter: 2009Q3

REPORT INFORMATION
  Report Type: 
  Country: None (occurrence: None)
  Receive Date: 20090821
  Receipt Date: 20090807
  Transmission Date: 20100115
  Serious: Yes (Congenital Anomaly)
  Sender: FDA-Public Use
  Company Number: 1000008229

PATIENT

DRUGS (1)
  1. CITALOPRAM HYDROBROMIDE [Suspect]

REACTIONS (3)
  - CONGENITAL CYSTIC KIDNEY DISEASE [None]
  - CONGENITAL URINARY TRACT OBSTRUCTION [None]
  - MATERNAL DRUGS AFFECTING FOETUS [None]
